FAERS Safety Report 9291111 (Version 1)
Quarter: 2013Q2

REPORT INFORMATION
  Report Type: Other
  Country: GB (occurrence: GB)
  Receive Date: 20130515
  Receipt Date: 20130515
  Transmission Date: 20140414
  Serious: Yes (Other)
  Sender: FDA-Public Use
  Company Number: GB-ACTAVIS-2013-08246

PATIENT
  Age: 27 Year
  Sex: Female

DRUGS (3)
  1. TRAMADOL HYDROCHLORIDE (UNKNOWN) [Suspect]
     Indication: GASTROINTESTINAL PAIN
     Dosage: 100 MG, UNKNOWN
     Route: 048
     Dates: start: 200806
  2. CODEINE [Concomitant]
     Indication: PRODUCT USED FOR UNKNOWN INDICATION
     Dosage: UNK UNK, UNKNOWN
  3. ORAMORPH [Concomitant]
     Indication: PRODUCT USED FOR UNKNOWN INDICATION
     Dosage: UNK UNK, UNKNOWN
     Route: 065

REACTIONS (2)
  - Insomnia [Unknown]
  - Pruritus generalised [Unknown]
